FAERS Safety Report 4608641-3 (Version None)
Quarter: 2005Q1

REPORT INFORMATION
  Report Type: 
  Country: None (occurrence: None)
  Receive Date: 20050315
  Receipt Date: 20050210
  Transmission Date: 20050727
  Serious: Yes (Hospitalization)
  Sender: FDA-Public Use
  Company Number: DEWYE414110FEB05

PATIENT
  Sex: Female

DRUGS (12)
  1. ENBREL [Suspect]
     Indication: POLYARTHRITIS
     Dosage: UNKNOWN
     Route: 058
     Dates: start: 20030401
  2. SIMVASTATIN [Concomitant]
  3. HYDROCHLOROTHIAZIDE [Concomitant]
  4. FOLIC ACID [Concomitant]
  5. LISINOPRIL AND HYDROCHLOROTHIAZIDE [Concomitant]
  6. LANTAREL [Concomitant]
  7. AZATHIOPRINE [Concomitant]
  8. CLOPIDOGREL [Concomitant]
  9. ACETYLSALICYLIC ACID SRT [Concomitant]
  10. BISOPROLOL FUMARATE [Concomitant]
  11. FELODIPINE [Concomitant]
  12. RAMIPRIL [Concomitant]

REACTIONS (1)
  - MYOCARDIAL INFARCTION [None]
